FAERS Safety Report 6204210-2 (Version None)
Quarter: 2009Q2

REPORT INFORMATION
  Report Type: 
  Country: None (occurrence: None)
  Receive Date: 20090527
  Receipt Date: 20090522
  Transmission Date: 20091009
  Serious: Yes (Death, Hospitalization)
  Sender: FDA-Public Use
  Company Number: MX-ABBOTT-09P-107-0575331-00

PATIENT
  Sex: Male

DRUGS (1)
  1. KALETRA [Suspect]
     Indication: HIV INFECTION
     Dosage: 399.99/99.99MG CAPSULES
     Route: 048
     Dates: start: 20060309, end: 20060319

REACTIONS (1)
  - PULMONARY TUBERCULOSIS [None]
